FAERS Safety Report 13655573 (Version 1)
Quarter: 2017Q2

REPORT INFORMATION
  Report Type: Spontaneous
  Country: GB (occurrence: GB)
  Receive Date: 20170615
  Receipt Date: 20170615
  Transmission Date: 20170830
  Serious: Yes (Other)
  Sender: FDA-Public Use
  Company Number: GB-FERRINGPH-2017FE02822

PATIENT

DRUGS (1)
  1. FIRMAGON [Suspect]
     Active Substance: DEGARELIX ACETATE
     Indication: PRODUCT USED FOR UNKNOWN INDICATION
     Route: 065

REACTIONS (8)
  - Prostate cancer [Unknown]
  - Cholelithiasis [Unknown]
  - Pancreatic carcinoma metastatic [Unknown]
  - Bladder cancer [Unknown]
  - Pruritus [Unknown]
  - Hepatic function abnormal [Unknown]
  - Metastases to liver [Unknown]
  - Jaundice [Unknown]
